FAERS Safety Report 6943092-8 (Version None)
Quarter: 2010Q3

REPORT INFORMATION
  Report Type: 
  Country: None (occurrence: None)
  Receive Date: 20100826
  Receipt Date: 20100823
  Transmission Date: 20110219
  Serious: Yes (Other)
  Sender: FDA-Public Use
  Company Number: AU-BRISTOL-MYERS SQUIBB COMPANY-15254238

PATIENT

DRUGS (8)
  1. ATAZANAVIR [Suspect]
     Indication: HIV INFECTION
  2. ATAZANAVIR [Suspect]
     Indication: HEPATITIS B
  3. BARACLUDE [Suspect]
     Indication: HEPATITIS B
  4. BARACLUDE [Suspect]
     Indication: HIV INFECTION
  5. TRUVADA [Suspect]
     Indication: HEPATITIS B
  6. TRUVADA [Suspect]
     Indication: HIV INFECTION
  7. RITONAVIR [Suspect]
     Indication: HEPATITIS B
  8. RITONAVIR [Suspect]
     Indication: HIV INFECTION

REACTIONS (2)
  - URINARY RETENTION [None]
  - VIRAL LOAD INCREASED [None]
